FAERS Safety Report 19880880 (Version 2)
Quarter: 2021Q4

REPORT INFORMATION
  Report Type: Spontaneous
  Country: BR (occurrence: BR)
  Receive Date: 20210924
  Receipt Date: 20211004
  Transmission Date: 20220303
  Serious: Yes (Other)
  Sender: FDA-Public Use
  Company Number: BR-AMERICAN REGENT INC-2021002454

PATIENT
  Sex: Female

DRUGS (2)
  1. VENOFER [Suspect]
     Active Substance: IRON SUCROSE
     Indication: Anaemia
     Dosage: 100 MG- 5 AMPOULES 5 ML (5X5 ML)
     Route: 042
  2. FERINJECT [Suspect]
     Active Substance: FERRIC CARBOXYMALTOSE
     Indication: Iron deficiency
     Dosage: DILUTE 1 VIAL IN 0.9% SALINE SOLUTION 100 ML AND ADMINISTER IN 15 MINUTES - SINGLE DOSE (10 ML, 1 IN

REACTIONS (3)
  - Unevaluable event [Recovered/Resolved]
  - Maternal exposure during pregnancy [Unknown]
  - Product availability issue [Unknown]
